FAERS Safety Report 7698968-3 (Version None)
Quarter: 2011Q3

REPORT INFORMATION
  Report Type: 
  Country: None (occurrence: None)
  Receive Date: 20110818
  Receipt Date: 20110818
  Transmission Date: 20111222
  Serious: Yes (Hospitalization)
  Sender: FDA-Public Use
  Company Number: None

PATIENT
  Sex: Female
  Weight: 56.6996 kg

DRUGS (1)
  1. GAMUNEX [Suspect]
     Indication: JUVENILE ARTHRITIS
     Dosage: 30 GM QWK IV
     Route: 042
     Dates: start: 20110401, end: 20110814

REACTIONS (1)
  - PRURITUS [None]
